FAERS Safety Report 8925360 (Version 1)
Quarter: 2012Q4

REPORT INFORMATION
  Report Type: 
  Country: DK (occurrence: FR)
  Receive Date: 20121126
  Receipt Date: 20121126
  Transmission Date: 20130627
  Serious: Yes (Hospitalization)
  Sender: FDA-Public Use
  Company Number: FR-FRI-1000040580

PATIENT
  Age: 53 Year
  Sex: Male

DRUGS (6)
  1. ESCITALOPRAM ORAL SOLUTION [Suspect]
     Indication: DEPRESSIVE SYMPTOM
     Dosage: 7 mg
     Route: 048
     Dates: start: 20120908
  2. URBANYL [Concomitant]
     Route: 048
  3. LAMICTAL [Concomitant]
     Route: 048
  4. KEPPRA [Concomitant]
  5. GARDENAL [Concomitant]
     Route: 048
  6. DAFALGAN [Concomitant]
     Route: 048

REACTIONS (2)
  - Grand mal convulsion [Recovered/Resolved]
  - Loss of consciousness [None]
